FAERS Safety Report 10355047 (Version 5)
Quarter: 2014Q3

REPORT INFORMATION
  Report Type: Spontaneous
  Country: JP (occurrence: JP)
  Receive Date: 20140731
  Receipt Date: 20140915
  Transmission Date: 20150326
  Serious: Yes (Hospitalization, Other)
  Sender: FDA-Public Use
  Company Number: JP-PFIZER INC-2013311691

PATIENT
  Age: 6 Day
  Sex: Male
  Weight: 3.16 kg

DRUGS (7)
  1. POSTERISAN FORTE [Concomitant]
     Active Substance: LIDOCAINE
     Indication: HAEMORRHOIDS
     Dosage: 2 G, AS NEEDED
     Route: 064
     Dates: start: 20140317
  2. CABERGOLINE. [Suspect]
     Active Substance: CABERGOLINE
     Indication: PROLACTINOMA
     Dosage: 1 MG, 2X/WEEK
     Route: 064
     Dates: start: 20110311, end: 20131111
  3. CABERGOLINE. [Suspect]
     Active Substance: CABERGOLINE
     Dosage: 1 MG, WEEKLY
     Route: 064
     Dates: start: 20131112
  4. CALONAL [Concomitant]
     Active Substance: ACETAMINOPHEN
     Indication: HEADACHE
     Dosage: 200 MG, AS NEEDED
     Route: 064
     Dates: start: 20131209
  5. RELENZA [Suspect]
     Active Substance: ZANAMIVIR
     Indication: INFLUENZA
     Dosage: 10 MG, 2X/DAY
     Route: 064
     Dates: start: 20140112, end: 20140116
  6. UTEMERIN [Suspect]
     Active Substance: RITODRINE
     Indication: THREATENED LABOUR
     Dosage: 5 MG, 3X/DAY
     Route: 064
     Dates: start: 20140421, end: 20140511
  7. MAGNESIUM OXIDE. [Concomitant]
     Active Substance: MAGNESIUM OXIDE
     Indication: CONSTIPATION
     Dosage: 1 G, AS NEEDED
     Route: 064
     Dates: start: 20131209

REACTIONS (5)
  - Blood alkaline phosphatase increased [Unknown]
  - Blood lactate dehydrogenase increased [Unknown]
  - Maternal exposure during pregnancy [Unknown]
  - Jaundice neonatal [Recovered/Resolved]
  - Gamma-glutamyltransferase increased [Unknown]

NARRATIVE: CASE EVENT DATE: 20140605
